FAERS Safety Report 7562084-1 (Version None)
Quarter: 2011Q2

REPORT INFORMATION
  Report Type: 
  Country: None (occurrence: None)
  Receive Date: 20110622
  Receipt Date: 20110609
  Transmission Date: 20111010
  Serious: Yes (Other)
  Sender: FDA-Public Use
  Company Number: IE-BIOGENIDEC-2011BI000911

PATIENT
  Age: 41 Year
  Sex: Female

DRUGS (9)
  1. ACTONEL [Concomitant]
  2. TYSABRI [Suspect]
     Indication: RELAPSING-REMITTING MULTIPLE SCLEROSIS
     Route: 042
     Dates: start: 20070625, end: 20101117
  3. FRUMIL [Concomitant]
  4. LANSOPRAZOLE [Concomitant]
  5. PHOSPHATE ENEMAS [Concomitant]
  6. CODALAX [Concomitant]
  7. LIPITOR [Concomitant]
  8. PROZAC [Concomitant]
  9. TOILAX [Concomitant]

REACTIONS (1)
  - PROGRESSIVE MULTIFOCAL LEUKOENCEPHALOPATHY [None]
